FAERS Safety Report 8883763 (Version 1)
Quarter: 2012Q4

REPORT INFORMATION
  Report Type: 
  Country: FR (occurrence: FR)
  Receive Date: 20121102
  Receipt Date: 20121102
  Transmission Date: 20130627
  Serious: Yes (Hospitalization)
  Sender: FDA-Public Use
  Company Number: FR-FRI-1000039931

PATIENT
  Age: 32 Year
  Sex: Male

DRUGS (3)
  1. MILNACIPRAN [Suspect]
     Indication: DEPRESSION
     Route: 048
     Dates: start: 200811, end: 200903
  2. MILNACIPRAN [Suspect]
     Indication: DEPRESSION
     Dosage: 300 mg
     Route: 048
     Dates: start: 200903, end: 200905
  3. MILNACIPRAN [Suspect]
     Dosage: 150 mg
     Route: 048

REACTIONS (8)
  - Disturbance in attention [Unknown]
  - Speech disorder [Unknown]
  - Depressed level of consciousness [Unknown]
  - Tachycardia [Unknown]
  - Somnolence [Unknown]
  - Nausea [Unknown]
  - Prescribed overdose [Unknown]
  - Off label use [Unknown]
